FAERS Safety Report 4681611-5 (Version None)
Quarter: 2005Q2

REPORT INFORMATION
  Report Type: 
  Country: None (occurrence: None)
  Receive Date: 20050602
  Receipt Date: 20050516
  Transmission Date: 20051028
  Serious: Yes (Death, Hospitalization)
  Sender: FDA-Public Use
  Company Number: US_0411107732

PATIENT
  Sex: Male
  Weight: 98 kg

DRUGS (3)
  1. ZYPREXA [Suspect]
     Indication: MAJOR DEPRESSION
     Dosage: 7.5 MG
     Dates: start: 20010525, end: 20020905
  2. EFFEXOR [Concomitant]
  3. ZOLOFT [Concomitant]

REACTIONS (10)
  - AORTIC VALVE REPLACEMENT [None]
  - BLOOD CHOLESTEROL ABNORMAL [None]
  - CARDIAC FAILURE CONGESTIVE [None]
  - DIABETES MELLITUS [None]
  - HAEMORRHAGE [None]
  - HYPERTENSION [None]
  - MAJOR DEPRESSION [None]
  - PNEUMONIA [None]
  - POLYDIPSIA [None]
  - POLYURIA [None]
